FAERS Safety Report 9002157 (Version 1)
Quarter: 2013Q1

REPORT INFORMATION
  Report Type: Spontaneous
  Country: GB (occurrence: GB)
  Receive Date: 20130107
  Receipt Date: 20130107
  Transmission Date: 20140127
  Serious: Yes (Other)
  Sender: FDA-Public Use
  Company Number: GB-UCBSA-074261

PATIENT
  Sex: Female

DRUGS (4)
  1. LEVETIRACETAM [Suspect]
  2. DICLOFENAC SODIUM [Suspect]
  3. LAMOTRIGINE [Suspect]
  4. SODIUM VALPROATE [Concomitant]

REACTIONS (2)
  - Hypertension [Unknown]
  - Weight increased [Unknown]
